FAERS Safety Report 9124754 (Version 2)
Quarter: 2013Q2

REPORT INFORMATION
  Report Type: Spontaneous
  Country: BR (occurrence: BR)
  Receive Date: 20130117
  Receipt Date: 20130402
  Transmission Date: 20140414
  Serious: Yes (Other)
  Sender: FDA-Public Use
  Company Number: PHHY2013BR004415

PATIENT
  Sex: Female

DRUGS (4)
  1. MIACALCIC [Suspect]
     Indication: OSTEOPOROSIS
     Dosage: 200 IU, 1 DROP IN RIGHT NOSTRIL
     Route: 045
  2. MIACALCIC [Suspect]
     Dosage: 200 IU, 1 DROP IN RIGHT NOSTRIL
     Route: 045
  3. XANTINON B12 DRAGEES [Concomitant]
     Indication: HEPATIC STEATOSIS
     Dosage: 1 SPOON BEFORE MEALS
     Route: 048
  4. AMLOVASC [Concomitant]
     Indication: BLOOD PRESSURE
     Dosage: 100 MG, AT NIGHT
     Route: 048

REACTIONS (2)
  - Fall [Not Recovered/Not Resolved]
  - Back pain [Recovered/Resolved]
